FAERS Safety Report 13292455 (Version 2)
Quarter: 2017Q4

REPORT INFORMATION
  Report Type: Spontaneous
  Country: FR (occurrence: FR)
  Receive Date: 20170303
  Receipt Date: 20171121
  Transmission Date: 20180320
  Serious: Yes (Other)
  Sender: FDA-Public Use
  Company Number: FR-BAYER-2017-015696

PATIENT
  Age: 37 Year
  Sex: Female

DRUGS (1)
  1. MIRENA [Suspect]
     Active Substance: LEVONORGESTREL
     Indication: CONTRACEPTION
     Dosage: 20 MCG/24HR, CONT
     Route: 015
     Dates: start: 20120808, end: 20170121

REACTIONS (7)
  - Abortion of ectopic pregnancy [None]
  - Pain [None]
  - Amenorrhoea [None]
  - Ectopic pregnancy with contraceptive device [None]
  - Ruptured ectopic pregnancy [None]
  - Peritoneal haemorrhage [None]
  - Drug ineffective [None]

NARRATIVE: CASE EVENT DATE: 20170121
